FAERS Safety Report 13924391 (Version 1)
Quarter: 2017Q3

REPORT INFORMATION
  Report Type: Spontaneous
  Country: IT (occurrence: IT)
  Receive Date: 20170831
  Receipt Date: 20170831
  Transmission Date: 20171127
  Serious: Yes (Other)
  Sender: FDA-Public Use
  Company Number: PHHY2017IT096437

PATIENT
  Age: 3 Year
  Sex: Female

DRUGS (8)
  1. REVOLADE [Suspect]
     Active Substance: ELTROMBOPAG
     Dosage: 5 MG/KG, UNK
     Route: 065
     Dates: start: 20170607
  2. DIFLUCAN [Concomitant]
     Active Substance: FLUCONAZOLE
     Indication: PRODUCT USED FOR UNKNOWN INDICATION
     Dosage: UNK
     Route: 065
  3. REVOLADE [Suspect]
     Active Substance: ELTROMBOPAG
     Indication: APLASTIC ANAEMIA
     Dosage: 125 MG, QD (2.5 MG/KG)
     Route: 065
     Dates: start: 20170525
  4. MYCOSTATIN [Concomitant]
     Active Substance: NYSTATIN
     Indication: PRODUCT USED FOR UNKNOWN INDICATION
     Route: 065
  5. CYCLOSPORIN A [Concomitant]
     Active Substance: CYCLOSPORINE
     Indication: PRODUCT USED FOR UNKNOWN INDICATION
     Dosage: UNK
     Route: 065
  6. AUGMENTIN [Concomitant]
     Active Substance: AMOXICILLIN\CLAVULANATE POTASSIUM
     Indication: PRODUCT USED FOR UNKNOWN INDICATION
     Route: 065
  7. ZOVIRAX [Concomitant]
     Active Substance: ACYCLOVIR
     Indication: PRODUCT USED FOR UNKNOWN INDICATION
     Route: 065
  8. REVOLADE [Suspect]
     Active Substance: ELTROMBOPAG
     Dosage: 7.5 MG/KG, UNK
     Route: 065
     Dates: start: 20170622

REACTIONS (2)
  - Blood creatinine increased [Recovered/Resolved]
  - Hyperchromasia [Recovered/Resolved]

NARRATIVE: CASE EVENT DATE: 20170623
